FAERS Safety Report 8927553 (Version 4)
Quarter: 2013Q4

REPORT INFORMATION
  Report Type: Report from Study
  Country: CA (occurrence: CA)
  Receive Date: 20121127
  Receipt Date: 20131126
  Transmission Date: 20140711
  Serious: Yes (Hospitalization, Other)
  Sender: FDA-Public Use
  Company Number: CA-ROCHE-1160138

PATIENT
  Age: 62 Year
  Sex: Female
  Weight: 56.8 kg

DRUGS (10)
  1. RITUXAN [Suspect]
     Indication: RHEUMATOID ARTHRITIS
     Dosage: MOST RECENT DOSE OF RITUXIMAB: 06/MAR/2013.
     Route: 042
     Dates: start: 20101018
  2. RITUXAN [Suspect]
     Route: 042
     Dates: start: 20130220
  3. VOLTAREN [Concomitant]
  4. METHOTREXATE [Concomitant]
     Route: 048
  5. LOSEC (OMEPRAZOLE) [Concomitant]
     Indication: GASTROINTESTINAL DISORDER
  6. SYNTHROID [Concomitant]
  7. DIPHENHYDRAMINE HCL [Concomitant]
     Indication: PREMEDICATION
     Route: 048
     Dates: start: 20101018
  8. ACETAMINOPHEN [Concomitant]
     Indication: PREMEDICATION
     Route: 048
     Dates: start: 20101018
  9. METHYLPREDNISOLONE [Concomitant]
     Indication: PREMEDICATION
     Route: 042
     Dates: start: 20101018
  10. FOLIC ACID [Concomitant]

REACTIONS (8)
  - Joint effusion [Unknown]
  - Infection [Unknown]
  - Pyrexia [Unknown]
  - Nodule [Not Recovered/Not Resolved]
  - Palpitations [Recovered/Resolved]
  - Erythema [Recovered/Resolved]
  - Insomnia [Recovered/Resolved]
  - Pain [Recovering/Resolving]
